FAERS Safety Report 10111642 (Version 1)
Quarter: 2014Q2

REPORT INFORMATION
  Report Type: Report from Study
  Country: DE (occurrence: DE)
  Receive Date: 20140425
  Receipt Date: 20140425
  Transmission Date: 20141212
  Serious: Yes (Other)
  Sender: FDA-Public Use
  Company Number: DE-US-EMD SERONO, INC.-7283384

PATIENT
  Age: 54 Year
  Sex: Female

DRUGS (1)
  1. REBIF [Suspect]
     Indication: MULTIPLE SCLEROSIS
     Route: 058
     Dates: start: 2001

REACTIONS (5)
  - Optic neuritis [Not Recovered/Not Resolved]
  - Tendon rupture [Recovered/Resolved]
  - Foot deformity [Recovered/Resolved]
  - Impaired healing [Recovered/Resolved]
  - Post procedural complication [Recovered/Resolved]
